FAERS Safety Report 9515724 (Version 1)
Quarter: 2013Q3

REPORT INFORMATION
  Report Type: Spontaneous
  Country: US (occurrence: US)
  Receive Date: 20130911
  Receipt Date: 20130911
  Transmission Date: 20140515
  Serious: Yes (Other)
  Sender: FDA-Public Use
  Company Number: US-PFIZER INC-2013258571

PATIENT
  Age: 70 Year
  Sex: Female
  Weight: 60 kg

DRUGS (3)
  1. CELEBREX [Suspect]
     Indication: PROCEDURAL PAIN
     Dosage: 200 MG, 1X/DAY
     Route: 048
     Dates: start: 201306, end: 201306
  2. CELEBREX [Suspect]
     Dosage: 200 MG, 1X/DAY
     Route: 048
     Dates: start: 201308, end: 20130905
  3. SYNTHROID [Concomitant]
     Indication: HYPOTHYROIDISM
     Dosage: UNK

REACTIONS (3)
  - Choking [Unknown]
  - Drug ineffective [Unknown]
  - Oropharyngeal pain [Unknown]
